FAERS Safety Report 19498312 (Version 1)
Quarter: 2021Q3

REPORT INFORMATION
  Report Type: Spontaneous
  Country: US (occurrence: US)
  Receive Date: 20210706
  Receipt Date: 20210706
  Transmission Date: 20211014
  Serious: Yes (Life-Threatening, Hospitalization)
  Sender: FDA-Public Use
  Company Number: US-BRACCO-2021US02806

PATIENT
  Sex: Male

DRUGS (7)
  1. ISOVUE 370 [Suspect]
     Active Substance: IOPAMIDOL
     Indication: ANGIOGRAM CEREBRAL
     Dosage: 45 ML, SINGLE
     Route: 042
     Dates: start: 20210419, end: 20210419
  2. VERAPAMIL [Concomitant]
     Active Substance: VERAPAMIL HYDROCHLORIDE
     Dosage: 2.5 MG
     Route: 014
  3. VERSED [Concomitant]
     Active Substance: MIDAZOLAM HYDROCHLORIDE
     Dosage: 1 MG
  4. LIDOCAINE. [Concomitant]
     Active Substance: LIDOCAINE
     Dosage: 20 MG
     Dates: start: 20210419, end: 20210419
  5. NITRO [SILDENAFIL CITRATE] [Concomitant]
     Active Substance: SILDENAFIL CITRATE
     Dosage: 200 ?G
     Route: 014
  6. FENTANYL. [Concomitant]
     Active Substance: FENTANYL
     Dosage: 50 MG
  7. HEPARIN [Concomitant]
     Active Substance: HEPARIN SODIUM
     Dosage: 2,000 UNITS
     Route: 014

REACTIONS (3)
  - Aggression [Recovered/Resolved]
  - Aphasia [Recovered/Resolved]
  - Headache [Recovered/Resolved]

NARRATIVE: CASE EVENT DATE: 20210419
